FAERS Safety Report 7298541-5 (Version None)
Quarter: 2011Q1

REPORT INFORMATION
  Report Type: 
  Country: None (occurrence: None)
  Receive Date: 20110217
  Receipt Date: 20110207
  Transmission Date: 20110831
  Serious: Yes (Other)
  Sender: FDA-Public Use
  Company Number: US-BAYER-2011-014072

PATIENT
  Sex: Female

DRUGS (3)
  1. OCELLA [Suspect]
     Dosage: UNK
     Route: 048
     Dates: start: 20041201
  2. YASMIN [Suspect]
     Dosage: UNK
     Dates: start: 20041201
  3. YAZ [Suspect]
     Dosage: UNK
     Dates: start: 20041201

REACTIONS (4)
  - PAIN [None]
  - GALLBLADDER INJURY [None]
  - EMOTIONAL DISTRESS [None]
  - INJURY [None]
